FAERS Safety Report 10043346 (Version 1)
Quarter: 2014Q1

REPORT INFORMATION
  Report Type: Spontaneous
  Country: US (occurrence: None)
  Receive Date: 20140327
  Receipt Date: 20140327
  Transmission Date: 20141002
  Serious: Yes (Disabling)
  Sender: FDA-Public Use
  Company Number: None

PATIENT
  Age: 57 Year
  Sex: Female
  Weight: 58.06 kg

DRUGS (1)
  1. LEVOFLOXACIN [Suspect]
     Indication: PNEUMONIA
     Dosage: 10 TABLETS ONCE DAILY TAKEN BY MOUTH
     Route: 048
     Dates: start: 20140303, end: 20140311

REACTIONS (7)
  - Haematochezia [None]
  - Paraesthesia [None]
  - Neuropathy peripheral [None]
  - Pain [None]
  - Weight increased [None]
  - Activities of daily living impaired [None]
  - Hypoaesthesia [None]
